FAERS Safety Report 15740215 (Version 1)
Quarter: 2018Q4

REPORT INFORMATION
  Report Type: Spontaneous
  Country: US (occurrence: US)
  Receive Date: 20181219
  Receipt Date: 20181219
  Transmission Date: 20190205
  Serious: Yes (Hospitalization)
  Sender: FDA-Public Use
  Company Number: None

PATIENT
  Age: 64 Year
  Sex: Male
  Weight: 83.5 kg

DRUGS (4)
  1. RITUXIMAB. [Suspect]
     Active Substance: RITUXIMAB
     Indication: DIFFUSE LARGE B-CELL LYMPHOMA
     Dosage: ?          OTHER FREQUENCY:ONCE;?
     Route: 041
     Dates: start: 20181019, end: 20181019
  2. CYCLOPHOSPHAMIDE. [Concomitant]
     Active Substance: CYCLOPHOSPHAMIDE
     Dates: start: 20181019, end: 20181019
  3. LIPOSOMAL DOXORUBICIN [Concomitant]
     Active Substance: DOXORUBICIN HYDROCHLORIDE
     Dates: start: 20181019, end: 20181019
  4. VINCRISTINE [Concomitant]
     Active Substance: VINCRISTINE
     Dates: start: 20181019, end: 20181019

REACTIONS (5)
  - Hypoxia [None]
  - Hypotension [None]
  - Gastrointestinal haemorrhage [None]
  - Interstitial lung disease [None]
  - Pneumonitis [None]

NARRATIVE: CASE EVENT DATE: 20181109
